FAERS Safety Report 7007760-4 (Version None)
Quarter: 2010Q3

REPORT INFORMATION
  Report Type: 
  Country: None (occurrence: None)
  Receive Date: 20100920
  Receipt Date: 20100901
  Transmission Date: 20110219
  Serious: Yes (Hospitalization, Other)
  Sender: FDA-Public Use
  Company Number: JPI-P-012104

PATIENT
  Age: 48 Year
  Sex: Male
  Weight: 101.6057 kg

DRUGS (7)
  1. XYREM [Suspect]
     Indication: NARCOLEPSY
     Dosage: 2.25 GM (2.25 GM, 1 IN 1 D) ORAL; 3 GM (3 GM, 1 IN 1 D) ORAL
     Route: 048
     Dates: end: 20100803
  2. XYREM [Suspect]
     Indication: NARCOLEPSY
     Dosage: 2.25 GM (2.25 GM, 1 IN 1 D) ORAL; 3 GM (3 GM, 1 IN 1 D) ORAL
     Route: 048
     Dates: start: 20060101
  3. MULTI-VITAMIN [Concomitant]
  4. LOVAZA [Concomitant]
  5. GARLIC TABLETS [Concomitant]
  6. OATBRAN [Concomitant]
  7. HYDROCHLOROTHIAZIDE [Concomitant]

REACTIONS (2)
  - BACK PAIN [None]
  - CONDITION AGGRAVATED [None]
